FAERS Safety Report 4765782-8 (Version None)
Quarter: 2005Q3

REPORT INFORMATION
  Report Type: 
  Country: None (occurrence: None)
  Receive Date: 20050907
  Receipt Date: 20050907
  Transmission Date: 20060218
  Serious: Yes (Hospitalization)
  Sender: FDA-Public Use
  Company Number: None

PATIENT
  Sex: Female

DRUGS (8)
  1. ZD1839 [Suspect]
     Indication: RENAL CELL CARCINOMA STAGE UNSPECIFIED
     Dosage: 250 MG QD
     Dates: start: 20050712, end: 20050830
  2. PEG INTERFERON ALFA 2B [Suspect]
     Indication: RENAL CELL CARCINOMA STAGE UNSPECIFIED
     Dosage: PEG 300 MG2 ONCE/WEEK SQ.
     Route: 058
     Dates: start: 20050712, end: 20050830
  3. DOCUSATE [Concomitant]
  4. MEGESTROL [Concomitant]
  5. NYSTATIN [Concomitant]
  6. DIOVAN [Concomitant]
  7. DIPHENHYDRAMINE HCL [Concomitant]
  8. ACETAMINOPHEN [Concomitant]

REACTIONS (6)
  - BLOOD CREATININE INCREASED [None]
  - CHILLS [None]
  - DECREASED APPETITE [None]
  - DEHYDRATION [None]
  - FATIGUE [None]
  - VOMITING [None]
